FAERS Safety Report 7961824-7 (Version None)
Quarter: 2011Q4

REPORT INFORMATION
  Report Type: 
  Country: None (occurrence: None)
  Receive Date: 20111207
  Receipt Date: 20111207
  Transmission Date: 20120403
  Serious: Yes (Hospitalization, Other)
  Sender: FDA-Public Use
  Company Number: None

PATIENT
  Age: 38 Year
  Sex: Male
  Weight: 81.646 kg

DRUGS (1)
  1. BACLOFEN [Suspect]

REACTIONS (18)
  - BLOOD PRESSURE FLUCTUATION [None]
  - STRESS AT WORK [None]
  - MENTAL DISORDER [None]
  - DEPRESSION [None]
  - IMPAIRED WORK ABILITY [None]
  - TINNITUS [None]
  - VOMITING [None]
  - PRODUCT QUALITY ISSUE [None]
  - THROAT IRRITATION [None]
  - CONDITION AGGRAVATED [None]
  - DEVICE BATTERY ISSUE [None]
  - BIPOLAR DISORDER [None]
  - SINUSITIS [None]
  - SEASONAL ALLERGY [None]
  - DEVICE MALFUNCTION [None]
  - DYSURIA [None]
  - GASTROINTESTINAL DISORDER [None]
  - RENAL PAIN [None]
